FAERS Safety Report 16347669 (Version 1)
Quarter: 2019Q3

REPORT INFORMATION
  Report Type: Spontaneous
  Country: US (occurrence: US)
  Receive Date: 20190522
  Receipt Date: 20190522
  Transmission Date: 20191004
  Serious: Yes (Hospitalization)
  Sender: FDA-Public Use
  Company Number: None

PATIENT
  Sex: Female

DRUGS (3)
  1. MAKENA [Suspect]
     Active Substance: HYDROXYPROGESTERONE CAPROATE
     Indication: PREMATURE LABOUR
     Route: 058
     Dates: start: 20190116
  2. PRENATAL VITAMIN [Suspect]
     Active Substance: VITAMINS
  3. MULTIVITAMIN [Suspect]
     Active Substance: VITAMINS

REACTIONS (1)
  - Hospitalisation [None]
